FAERS Safety Report 5341020-2 (Version None)
Quarter: 2007Q2

REPORT INFORMATION
  Report Type: 
  Country: None (occurrence: None)
  Receive Date: 20070531
  Receipt Date: 20070521
  Transmission Date: 20071010
  Serious: Yes (Hospitalization)
  Sender: FDA-Public Use
  Company Number: GB-AMGEN-UK204023

PATIENT
  Sex: Female

DRUGS (3)
  1. PANITUMUMAB [Suspect]
     Indication: COLORECTAL CANCER
     Route: 041
     Dates: start: 20061206, end: 20061206
  2. OXALIPLATIN [Suspect]
     Route: 041
     Dates: start: 20061206
  3. FLUOROURACIL [Suspect]
     Route: 041
     Dates: start: 20061206

REACTIONS (2)
  - CATHETER SITE INFECTION [None]
  - NEUTROPENIA [None]
